FAERS Safety Report 9750358 (Version 1)
Quarter: 2013Q4

REPORT INFORMATION
  Report Type: Spontaneous
  Country: IN (occurrence: IN)
  Receive Date: 20131212
  Receipt Date: 20131212
  Transmission Date: 20140711
  Serious: Yes (Hospitalization)
  Sender: FDA-Public Use
  Company Number: IN-ROXANE LABORATORIES, INC.-2013-RO-01921RO

PATIENT
  Age: 55 Year
  Sex: Male

DRUGS (3)
  1. LITHIUM CARBONATE [Suspect]
     Indication: BIPOLAR DISORDER
     Dosage: 450 MG
  2. RAMIPRIL [Suspect]
     Indication: ANGIOTENSIN CONVERTING ENZYME
  3. CARBAMAZAPINE [Suspect]
     Indication: BIPOLAR DISORDER
     Dosage: 1000 MG

REACTIONS (3)
  - Sinus arrhythmia [Recovered/Resolved]
  - Toxicity to various agents [Recovered/Resolved]
  - Sinus arrest [Recovered/Resolved]
